FAERS Safety Report 10266117 (Version 1)
Quarter: 2014Q2

REPORT INFORMATION
  Report Type: Report from Study
  Country: US (occurrence: US)
  Receive Date: 20140627
  Receipt Date: 20140627
  Transmission Date: 20141212
  Serious: Yes (Other)
  Sender: FDA-Public Use
  Company Number: US-BAXTER-2014BAX034851

PATIENT
  Sex: 0

DRUGS (7)
  1. CYCLOPHOSPHAMIDE FOR INJECTION, USP [Suspect]
     Indication: MANTLE CELL LYMPHOMA
     Dosage: 3 CYCLES; ON DAYS 1 THROUGH 3 (FOR A TOTAL OF 6 DOSES)
     Route: 042
  2. RITUXIMAB [Suspect]
     Indication: MANTLE CELL LYMPHOMA
     Dosage: 3 CYCLES; DAY 1
     Route: 042
  3. RITUXIMAB [Suspect]
     Indication: DRUG THERAPY
     Dosage: X 4; TOTAL OF 16 DOSES
  4. BORTEZOMIB [Suspect]
     Indication: MANTLE CELL LYMPHOMA
     Dosage: 3 CYCLES; ON DAY 1 AND 4
     Route: 042
  5. DOXORUBICIN [Suspect]
     Indication: MANTLE CELL LYMPHOMA
     Dosage: 3 CYCLES; CONTINUOUS INFUSION ON ON DAYS 1 AND 2
     Route: 042
  6. VINCRISTINE [Suspect]
     Indication: MANTLE CELL LYMPHOMA
     Dosage: 3 CYCLES; DAY 3
     Route: 042
  7. DEXAMETHASONE [Suspect]
     Indication: MANTLE CELL LYMPHOMA
     Dosage: 3 CYCLES; ON DAYS 1 THROUGH 4
     Route: 048

REACTIONS (1)
  - Disease progression [Unknown]
